FAERS Safety Report 8222058-4 (Version None)
Quarter: 2012Q1

REPORT INFORMATION
  Report Type: 
  Country: None (occurrence: None)
  Receive Date: 20120320
  Receipt Date: 20120313
  Transmission Date: 20120608
  Serious: Yes (Death, Other)
  Sender: FDA-Public Use
  Company Number: US-VERTEX PHARMACEUTICALS INC.-AE-2011-003589

PATIENT
  Sex: Female

DRUGS (11)
  1. RIBAVIRIN [Concomitant]
     Indication: HEPATITIS C
     Dates: start: 20111014
  2. OMEPRAZOLE [Concomitant]
  3. METFORMIN HCL [Concomitant]
  4. ADALIMUMAB [Concomitant]
  5. FLUOXETINE [Concomitant]
  6. PEGINTERFERON [Concomitant]
     Indication: HEPATITIS C
     Dates: start: 20111014
  7. AMLODIPINE [Concomitant]
  8. GLYBURIDE [Concomitant]
  9. TERIPARATIDE [Concomitant]
  10. INCIVEK [Suspect]
     Indication: HEPATITIS C
     Dates: start: 20111014, end: 20111106
  11. OMEPRAZOLE [Concomitant]

REACTIONS (3)
  - MYOCARDIAL INFARCTION [None]
  - METABOLIC ACIDOSIS [None]
  - ANAEMIA [None]
